FAERS Safety Report 9386064 (Version 1)
Quarter: 2013Q3

REPORT INFORMATION
  Report Type: Spontaneous
  Country: GR (occurrence: GR)
  Receive Date: 20130706
  Receipt Date: 20130706
  Transmission Date: 20140515
  Serious: Yes (Other)
  Sender: FDA-Public Use
  Company Number: GR-B.I. PHARMACEUTICALS,INC./RIDGEFIELD-2013-BI-19615YA

PATIENT
  Age: 70 Year
  Sex: Male

DRUGS (3)
  1. OMNIC OCAS [Suspect]
     Indication: BENIGN PROSTATIC HYPERPLASIA
     Route: 048
  2. ENEAS [Concomitant]
  3. PHYSIOTENS [Concomitant]

REACTIONS (3)
  - Dysphagia [Unknown]
  - Dysphagia [Recovered/Resolved]
  - Product quality issue [Unknown]
